FAERS Safety Report 7303783-6 (Version None)
Quarter: 2011Q1

REPORT INFORMATION
  Report Type: 
  Country: None (occurrence: None)
  Receive Date: 20110221
  Receipt Date: 20110215
  Transmission Date: 20110831
  Serious: Yes (Hospitalization)
  Sender: FDA-Public Use
  Company Number: ES-BRISTOL-MYERS SQUIBB COMPANY-15513344

PATIENT
  Age: 43 Year
  Sex: Female

DRUGS (1)
  1. BARACLUDE [Suspect]
     Indication: HEPATITIS B
     Dosage: VIRAL LOAD MORE THAN 20000 IU AND INTERMITTENT TRANSAMINASES INCREASED
     Route: 048
     Dates: start: 20090301

REACTIONS (1)
  - DERMATITIS [None]
